FAERS Safety Report 10090604 (Version 1)
Quarter: 2014Q2

REPORT INFORMATION
  Report Type: Spontaneous
  Country: US (occurrence: None)
  Receive Date: 20140417
  Receipt Date: 20140417
  Transmission Date: 20141212
  Serious: Yes (Hospitalization)
  Sender: FDA-Public Use
  Company Number: UTC-046998

PATIENT
  Age: 47 Year
  Sex: Female

DRUGS (6)
  1. TYVASO (0.6 MILLIGRAM/MILLILITERS, AEROSOL FOR INHALATION) (TREPROSTINIL SODIUM) [Suspect]
     Indication: PULMONARY ARTERIAL HYPERTENSION
     Dosage: (54 MCG, 4 IN 1 D)
     Route: 055
     Dates: start: 20100327
  2. REVATIO (SILDENAFIL CITRATE) [Concomitant]
  3. TRACLEER (BOSENTAN) [Concomitant]
  4. DIURETICS [Concomitant]
  5. COUMADIN (WARFARIN SODIUM) [Concomitant]
  6. VELETRI (EPOPROSTENOL) [Concomitant]

REACTIONS (2)
  - Dyspnoea [None]
  - Device alarm issue [None]
